FAERS Safety Report 11267577 (Version 1)
Quarter: 2015Q3

REPORT INFORMATION
  Report Type: Spontaneous
  Country: US (occurrence: US)
  Receive Date: 20150713
  Receipt Date: 20150713
  Transmission Date: 20151125
  Serious: Yes (Hospitalization, Other)
  Sender: FDA-Public Use
  Company Number: US-MPIJNJ-2013-04858

PATIENT

DRUGS (2)
  1. VELCADE [Suspect]
     Active Substance: BORTEZOMIB
     Indication: PLASMA CELL MYELOMA
     Dosage: 2 MG, UNK
     Route: 042
     Dates: end: 20130608
  2. VELCADE [Suspect]
     Active Substance: BORTEZOMIB
     Dosage: 2 MG, UNK
     Route: 058
     Dates: end: 20130608

REACTIONS (9)
  - Blood pressure increased [Not Recovered/Not Resolved]
  - Hypersomnia [Not Recovered/Not Resolved]
  - Diarrhoea [Unknown]
  - Posterior reversible encephalopathy syndrome [Unknown]
  - Somnolence [Not Recovered/Not Resolved]
  - Vomiting [Unknown]
  - Diplopia [Unknown]
  - Headache [Not Recovered/Not Resolved]
  - Seizure [Not Recovered/Not Resolved]

NARRATIVE: CASE EVENT DATE: 20130608
